FAERS Safety Report 18958497 (Version 1)
Quarter: 2021Q1

REPORT INFORMATION
  Report Type: Spontaneous
  Country: US (occurrence: US)
  Receive Date: 20210302
  Receipt Date: 20210302
  Transmission Date: 20210420
  Serious: No
  Sender: FDA-Public Use
  Company Number: None

PATIENT
  Age: 63 Year
  Sex: Male
  Weight: 125.1 kg

DRUGS (12)
  1. METOPROLOL. [Concomitant]
     Active Substance: METOPROLOL
  2. ATORVASTATIN [Concomitant]
     Active Substance: ATORVASTATIN
  3. COENZYME Q10 [Concomitant]
     Active Substance: DIETARY SUPPLEMENT\UBIDECARENONE
  4. MULTIVITAMIN [Concomitant]
     Active Substance: VITAMINS
  5. IRON [Concomitant]
     Active Substance: IRON
  6. RYBELSUS [Suspect]
     Active Substance: SEMAGLUTIDE
     Indication: TYPE 2 DIABETES MELLITUS
  7. GLYBURIDE. [Concomitant]
     Active Substance: GLYBURIDE
  8. MAGNESIUM [Concomitant]
     Active Substance: MAGNESIUM
  9. LOSARTAN. [Concomitant]
     Active Substance: LOSARTAN
  10. VIT D [Concomitant]
     Active Substance: VITAMIN D NOS
  11. METFORMIN [Concomitant]
     Active Substance: METFORMIN HYDROCHLORIDE
  12. CPAP [Concomitant]
     Active Substance: DEVICE

REACTIONS (4)
  - Decreased appetite [None]
  - Eructation [None]
  - Nausea [None]
  - Flatulence [None]
